FAERS Safety Report 10004497 (Version 1)
Quarter: 2014Q1

REPORT INFORMATION
  Report Type: Spontaneous
  Country: GB (occurrence: GB)
  Receive Date: 20140312
  Receipt Date: 20140312
  Transmission Date: 20141002
  Serious: Yes (Other)
  Sender: FDA-Public Use
  Company Number: GB-PFIZER INC-2014067770

PATIENT
  Age: 48 Year
  Sex: Male

DRUGS (8)
  1. CHAMPIX [Suspect]
     Dosage: UNK TITRATION PACK
     Route: 048
  2. CLOPIDOGREL [Suspect]
     Dosage: 75 MG, 1X/DAY
  3. FLUOXETINE [Suspect]
     Dosage: 40 MG, 1X/DAY
  4. ACETYLSALICYLIC ACID [Suspect]
     Dosage: 75 MG, ONCE A DAY
     Dates: start: 201304
  5. ATORVASTATIN [Concomitant]
     Dosage: 80 MG, ONCE A DAY
  6. BISOPROLOL [Concomitant]
     Dosage: 1.25 MG, ONCE A DAY
  7. LANSOPRAZOLE [Concomitant]
     Dosage: 30 MG, ONCE A DAY
  8. LOSARTAN [Concomitant]
     Dosage: 100 MG, ONCE A DAY

REACTIONS (4)
  - Haematuria [Unknown]
  - Pyrexia [Unknown]
  - Myalgia [Unknown]
  - Urinary tract infection [Unknown]
